FAERS Safety Report 24066522 (Version 1)
Quarter: 2024Q3

REPORT INFORMATION
  Report Type: Spontaneous
  Country: KE (occurrence: KE)
  Receive Date: 20240709
  Receipt Date: 20240709
  Transmission Date: 20241017
  Serious: Yes (Other)
  Sender: NOVARTIS
  Company Number: KE-002147023-NVSC2024KE139886

PATIENT
  Age: 64 Year
  Sex: Female

DRUGS (6)
  1. ZOMETA [Suspect]
     Active Substance: ZOLEDRONIC ACID
     Indication: Breast cancer
     Dosage: 4 MG
     Route: 042
  2. ZOMETA [Suspect]
     Active Substance: ZOLEDRONIC ACID
     Indication: Metastases to lung
  3. EXEMESTANE [Concomitant]
     Active Substance: EXEMESTANE
     Indication: Breast cancer
     Dosage: 25 MG, QD
     Route: 065
  4. EXEMESTANE [Concomitant]
     Active Substance: EXEMESTANE
     Indication: Metastases to lung
  5. EVEROLIMUS [Concomitant]
     Active Substance: EVEROLIMUS
     Indication: Breast cancer
     Dosage: 10 MG, QD
     Route: 065
  6. EVEROLIMUS [Concomitant]
     Active Substance: EVEROLIMUS
     Indication: Metastases to lung

REACTIONS (1)
  - Osteonecrosis of jaw [Unknown]
